FAERS Safety Report 8473981-7 (Version None)
Quarter: 2012Q2

REPORT INFORMATION
  Report Type: 
  Country: None (occurrence: None)
  Receive Date: 20120628
  Receipt Date: 20120622
  Transmission Date: 20120825
  Serious: Yes (Other)
  Sender: FDA-Public Use
  Company Number: US-MYLANLABS-2012S1004881

PATIENT
  Age: 52 Year
  Sex: Male

DRUGS (19)
  1. CLOZAPINE [Suspect]
     Route: 048
     Dates: end: 20120328
  2. THIOTHIXENE /00099101/ [Concomitant]
  3. OMEPRAZOLE [Concomitant]
  4. HYDROXYZINE PAMOATE [Concomitant]
     Dosage: PRN
  5. VENLAFAXINE [Concomitant]
  6. XIFAXAN [Concomitant]
  7. LACTULOSE [Concomitant]
  8. BUSPIRONE HCL [Concomitant]
  9. AMMONIUM LACTATE [Concomitant]
     Route: 061
  10. SPIRONOLACTONE [Concomitant]
  11. LASIX [Concomitant]
  12. CLOZAPINE [Suspect]
     Indication: SCHIZOAFFECTIVE DISORDER
     Route: 048
     Dates: start: 20120217, end: 20120323
  13. LITHIUM CARBONATE [Concomitant]
  14. FERROUS SULFATE TAB [Concomitant]
  15. CLOZAPINE [Suspect]
     Indication: SCHIZOPHRENIA
     Route: 048
     Dates: start: 20120217, end: 20120323
  16. LEVOTHYROXINE [Concomitant]
  17. LORATADINE [Concomitant]
  18. ZANTAC [Concomitant]
  19. BENZTROPINE MESYLATE [Concomitant]

REACTIONS (2)
  - LEUKOPENIA [None]
  - GRANULOCYTOPENIA [None]
